FAERS Safety Report 4837923-5 (Version None)
Quarter: 2005Q4

REPORT INFORMATION
  Report Type: 
  Country: None (occurrence: None)
  Receive Date: 20051123
  Receipt Date: 20051115
  Transmission Date: 20060501
  Serious: Yes (Other)
  Sender: FDA-Public Use
  Company Number: 2005140913

PATIENT
  Age: 14 Year
  Sex: Male

DRUGS (3)
  1. GENOTONORM (SOMATROPIN) [Suspect]
     Indication: HYPOPITUITARISM
     Dosage: 2.27 MG
     Dates: start: 20050510, end: 20051011
  2. HYDROCORTISONE [Concomitant]
  3. LEVOTHYROXINE SODIUM [Concomitant]

REACTIONS (3)
  - MALAISE [None]
  - NEOPLASM RECURRENCE [None]
  - OPTIC TRACT GLIOMA [None]
